FAERS Safety Report 4930451-8 (Version None)
Quarter: 2006Q1

REPORT INFORMATION
  Report Type: 
  Country: None (occurrence: None)
  Receive Date: 20060302
  Receipt Date: 20060202
  Transmission Date: 20060701
  Serious: Yes (Hospitalization)
  Sender: FDA-Public Use
  Company Number: 2006AP00560

PATIENT
  Age: 97 Year
  Sex: Female
  Weight: 40 kg

DRUGS (3)
  1. MEROPEN [Suspect]
     Indication: BACTERIAL INFECTION
     Route: 041
     Dates: start: 20051214, end: 20051218
  2. MEROPEN [Suspect]
     Route: 041
     Dates: start: 20051219, end: 20051225
  3. LASIX [Concomitant]
     Indication: CARDIAC FAILURE ACUTE
     Route: 042
     Dates: start: 20051215, end: 20051228

REACTIONS (1)
  - HEPATIC FUNCTION ABNORMAL [None]
